FAERS Safety Report 9375881 (Version 1)
Quarter: 2013Q2

REPORT INFORMATION
  Report Type: Spontaneous
  Country: US (occurrence: US)
  Receive Date: 20130628
  Receipt Date: 20130628
  Transmission Date: 20140414
  Serious: No
  Sender: FDA-Public Use
  Company Number: US-PFIZER INC-2013191474

PATIENT
  Age: 82 Year
  Sex: Male
  Weight: 90.7 kg

DRUGS (2)
  1. VIAGRA [Suspect]
     Indication: ERECTILE DYSFUNCTION
     Dosage: 50 MG, UNK
     Dates: start: 20130530
  2. VIAGRA [Suspect]
     Dosage: TABLETS OF 50 MG
     Dates: start: 2013

REACTIONS (1)
  - Drug ineffective [Unknown]
